FAERS Safety Report 20712536 (Version 2)
Quarter: 2022Q3

REPORT INFORMATION
  Report Type: Report from Study
  Country: US (occurrence: US)
  Receive Date: 20220415
  Receipt Date: 20220905
  Transmission Date: 20221026
  Serious: No
  Sender: FDA-Public Use
  Company Number: US-NOVARTISTESTPH-NVSC2022US085863

PATIENT
  Age: 19 Year
  Sex: Female

DRUGS (1)
  1. DEXAMETHASONE [Suspect]
     Active Substance: DEXAMETHASONE
     Indication: Immune thrombocytopenia
     Dosage: UNK
     Route: 065

REACTIONS (6)
  - Platelet count abnormal [Unknown]
  - Cognitive disorder [Unknown]
  - Asthenia [Unknown]
  - Fatigue [Unknown]
  - Negative thoughts [Unknown]
  - Drug ineffective [Unknown]
